FAERS Safety Report 4358028-6 (Version None)
Quarter: 2004Q2

REPORT INFORMATION
  Report Type: 
  Country: None (occurrence: None)
  Receive Date: 20040511
  Receipt Date: 20040428
  Transmission Date: 20050107
  Serious: Yes (Hospitalization)
  Sender: FDA-Public Use
  Company Number: MK200405-0043-1

PATIENT
  Age: 66 Year
  Sex: Female

DRUGS (4)
  1. CLOMIPRAMINE HCL [Suspect]
  2. OLANZAPINE [Suspect]
  3. OMEPRAZOLE [Suspect]
  4. ALLOPURINOL [Concomitant]

REACTIONS (8)
  - CARDIAC DISORDER [None]
  - CARDIOMYOPATHY [None]
  - DRUG INEFFECTIVE [None]
  - DRUG INTERACTION [None]
  - DRUG TOXICITY [None]
  - EJECTION FRACTION DECREASED [None]
  - GENERAL PHYSICAL HEALTH DETERIORATION [None]
  - HYPOKINESIA [None]
